FAERS Safety Report 24999408 (Version 2)
Quarter: 2025Q1

REPORT INFORMATION
  Report Type: Spontaneous
  Country: US (occurrence: US)
  Receive Date: 20250222
  Receipt Date: 20250312
  Transmission Date: 20250409
  Serious: No
  Sender: SANOFI AVENTIS
  Company Number: US-SA-2025SA046719

PATIENT
  Age: 7 Year
  Sex: Male

DRUGS (2)
  1. ALPROLIX [Suspect]
     Active Substance: EFTRENONACOG ALFA
     Indication: Factor IX deficiency
     Dosage: 3000 U (2700-3300) IV PUSH EVERY 7 DAYS AND DAILY AS NEEDED
     Route: 042
     Dates: start: 201710
  2. ALPROLIX [Suspect]
     Active Substance: EFTRENONACOG ALFA
     Indication: Factor IX deficiency
     Dosage: 3000 U (2700-3300) IV PUSH EVERY 7 DAYS AND DAILY AS NEEDED
     Route: 042
     Dates: start: 201710

REACTIONS (2)
  - Gingival bleeding [Unknown]
  - Loose tooth [Unknown]
